FAERS Safety Report 16011185 (Version 1)
Quarter: 2019Q1

REPORT INFORMATION
  Report Type: Spontaneous
  Country: IT (occurrence: IT)
  Receive Date: 20190227
  Receipt Date: 20190227
  Transmission Date: 20190418
  Serious: Yes (Hospitalization, Other)
  Sender: FDA-Public Use
  Company Number: IT-BRISTOL-MYERS SQUIBB COMPANY-BMS-2019-017533

PATIENT
  Age: 72 Year
  Sex: Female

DRUGS (5)
  1. COUMADIN [Suspect]
     Active Substance: WARFARIN SODIUM
     Indication: MITRAL VALVOTOMY
     Dosage: 5 MG
     Route: 048
     Dates: start: 20140201, end: 20190210
  2. DILATREND [Concomitant]
     Active Substance: CARVEDILOL
     Indication: PRODUCT USED FOR UNKNOWN INDICATION
     Route: 065
  3. METFORMIN [Concomitant]
     Active Substance: METFORMIN HYDROCHLORIDE
     Indication: PRODUCT USED FOR UNKNOWN INDICATION
     Route: 065
  4. CARDIOASPIRIN [Suspect]
     Active Substance: ASPIRIN
     Indication: CEREBROVASCULAR ACCIDENT
     Dosage: 100 MG
     Route: 048
     Dates: start: 20160201, end: 20190210
  5. TRIATEC                            /00116401/ [Concomitant]
     Active Substance: ACETAMINOPHEN\CODEINE PHOSPHATE
     Indication: PRODUCT USED FOR UNKNOWN INDICATION
     Route: 065

REACTIONS (4)
  - Paresis [Unknown]
  - Ischaemic stroke [Unknown]
  - Treatment noncompliance [Unknown]
  - Dysarthria [Unknown]

NARRATIVE: CASE EVENT DATE: 20190210
